FAERS Safety Report 8677638 (Version 2)
Quarter: 2012Q4

REPORT INFORMATION
  Report Type: 
  Country: US (occurrence: US)
  Receive Date: 20120723
  Receipt Date: 20120828
  Transmission Date: 20130627
  Serious: Yes (Hospitalization)
  Sender: FDA-Public Use
  Company Number: US-FRI-1000037258

PATIENT
  Age: 70 Year
  Sex: Female

DRUGS (5)
  1. VIIBRYD [Suspect]
     Indication: DEPRESSION
     Dosage: 10 mg
     Route: 048
     Dates: start: 201207, end: 201207
  2. VIIBRYD [Suspect]
     Dosage: 20 mg
     Route: 048
     Dates: start: 201207, end: 20120716
  3. VIIBRYD [Suspect]
     Dosage: 40 mg
     Route: 048
     Dates: start: 20120717
  4. IFOSFAMIDE [Suspect]
     Indication: CHEMOTHERAPY
  5. DILAUDID [Suspect]

REACTIONS (2)
  - Confusional state [Recovered/Resolved]
  - Incoherent [Recovered/Resolved]
